FAERS Safety Report 13928939 (Version 1)
Quarter: 2017Q3

REPORT INFORMATION
  Report Type: Spontaneous
  Country: US (occurrence: US)
  Receive Date: 20170901
  Receipt Date: 20170901
  Transmission Date: 20171127
  Serious: No
  Sender: FDA-Public Use
  Company Number: US-BAYER-2017-167333

PATIENT
  Age: 76 Year
  Sex: Female
  Weight: 60 kg

DRUGS (1)
  1. ALEVE [Suspect]
     Active Substance: NAPROXEN SODIUM
     Indication: PAIN
     Dosage: ONCE OR TWICE A DAY AS NEEDED
     Route: 048
     Dates: start: 2013

REACTIONS (2)
  - Expired product administered [Unknown]
  - Product expiration date issue [None]

NARRATIVE: CASE EVENT DATE: 201708
